FAERS Safety Report 5570668-5 (Version None)
Quarter: 2007Q4

REPORT INFORMATION
  Report Type: 
  Country: None (occurrence: None)
  Receive Date: 20071221
  Receipt Date: 20071207
  Transmission Date: 20080405
  Serious: Yes (Hospitalization)
  Sender: FDA-Public Use
  Company Number: FR-TEVA-165240ISR

PATIENT
  Age: 60 Year
  Sex: Male

DRUGS (1)
  1. QVAR AUTOHALER IVAX 100 MCG/ DOSE, SOLUTION POUR INHALATION EN FLACON [Suspect]
     Route: 055

REACTIONS (3)
  - DEPRESSION [None]
  - GAMMA-GLUTAMYLTRANSFERASE INCREASED [None]
  - SUICIDE ATTEMPT [None]
